FAERS Safety Report 5709496-6 (Version None)
Quarter: 2008Q2

REPORT INFORMATION
  Report Type: 
  Country: None (occurrence: None)
  Receive Date: 20080417
  Receipt Date: 20080417
  Transmission Date: 20081010
  Serious: No
  Sender: FDA-Public Use
  Company Number: None

PATIENT
  Sex: Male

DRUGS (1)
  1. SINGULAIR [Suspect]
     Indication: ASTHMA
     Dosage: 10MG NIGHTLY ORAL
     Route: 048
     Dates: start: 20070401, end: 20070801

REACTIONS (3)
  - ADVERSE DRUG REACTION [None]
  - DEPRESSION [None]
  - SUICIDAL IDEATION [None]
